FAERS Safety Report 13141891 (Version 2)
Quarter: 2017Q2

REPORT INFORMATION
  Report Type: Spontaneous
  Country: CA (occurrence: CA)
  Receive Date: 20170124
  Receipt Date: 20170503
  Transmission Date: 20170830
  Serious: Yes (Other)
  Sender: FDA-Public Use
  Company Number: CA-PFIZER INC-2016362518

PATIENT
  Age: 57 Year
  Sex: Female

DRUGS (1)
  1. XELJANZ [Suspect]
     Active Substance: TOFACITINIB CITRATE
     Indication: RHEUMATOID ARTHRITIS
     Dosage: 5 MG, 2X/DAY
     Route: 048
     Dates: start: 20160712, end: 2016

REACTIONS (12)
  - Malaise [Not Recovered/Not Resolved]
  - Lipoma of breast [Unknown]
  - Pulmonary mass [Unknown]
  - Migraine [Recovered/Resolved]
  - Limb mass [Unknown]
  - Breast mass [Not Recovered/Not Resolved]
  - Arthralgia [Unknown]
  - Tooth abscess [Recovered/Resolved]
  - Fatigue [Not Recovered/Not Resolved]
  - Asthenia [Not Recovered/Not Resolved]
  - Spleen disorder [Unknown]
  - Nasal congestion [Unknown]
